FAERS Safety Report 16075997 (Version 2)
Quarter: 2019Q2

REPORT INFORMATION
  Report Type: Spontaneous
  Country: PT (occurrence: PT)
  Receive Date: 20190315
  Receipt Date: 20190403
  Transmission Date: 20190711
  Serious: Yes (Hospitalization, Other)
  Sender: FDA-Public Use
  Company Number: PT-SA-2019SA068149

PATIENT
  Age: 72 Year
  Sex: Male

DRUGS (13)
  1. CARVEDILOL. [Suspect]
     Active Substance: CARVEDILOL
     Indication: ISCHAEMIC CARDIOMYOPATHY
     Route: 065
  2. CARVEDILOL. [Suspect]
     Active Substance: CARVEDILOL
     Indication: CORONARY ARTERY DISEASE
  3. PERINDOPRIL [Suspect]
     Active Substance: PERINDOPRIL
     Indication: CORONARY ARTERY DISEASE
  4. CLOPIDOGREL BISULFATE. [Suspect]
     Active Substance: CLOPIDOGREL BISULFATE
     Indication: CORONARY ARTERY DISEASE
     Route: 065
  5. CLOPIDOGREL BISULFATE. [Suspect]
     Active Substance: CLOPIDOGREL BISULFATE
     Indication: ANTIPLATELET THERAPY
  6. ROSUVASTATIN. [Suspect]
     Active Substance: ROSUVASTATIN
     Indication: CORONARY ARTERY DISEASE
  7. BUDESONIDE;FORMOTEROL [Concomitant]
     Dosage: UNK UNK,UNK,
     Route: 055
  8. CLOPIDOGREL BISULFATE. [Suspect]
     Active Substance: CLOPIDOGREL BISULFATE
     Indication: ISCHAEMIC CARDIOMYOPATHY
  9. TRIFLUSAL [Suspect]
     Active Substance: TRIFLUSAL
     Indication: ANTIPLATELET THERAPY
  10. ROSUVASTATIN. [Suspect]
     Active Substance: ROSUVASTATIN
     Indication: ISCHAEMIC CARDIOMYOPATHY
     Route: 065
  11. PERINDOPRIL [Suspect]
     Active Substance: PERINDOPRIL
     Indication: ISCHAEMIC CARDIOMYOPATHY
     Route: 065
  12. TRIFLUSAL [Suspect]
     Active Substance: TRIFLUSAL
     Indication: ISCHAEMIC CARDIOMYOPATHY
     Route: 065
  13. TRIFLUSAL [Suspect]
     Active Substance: TRIFLUSAL
     Indication: CORONARY ARTERY DISEASE

REACTIONS (7)
  - Flatulence [Recovered/Resolved]
  - Lactose intolerance [Recovered/Resolved]
  - Abdominal distension [Recovered/Resolved]
  - Treatment noncompliance [Unknown]
  - Abdominal pain [Recovered/Resolved]
  - Diarrhoea [Recovered/Resolved]
  - Nausea [Recovered/Resolved]
